FAERS Safety Report 21097741 (Version 2)
Quarter: 2022Q3

REPORT INFORMATION
  Report Type: Report from Study
  Country: KR (occurrence: None)
  Receive Date: 20220719
  Receipt Date: 20220901
  Transmission Date: 20221027
  Serious: Yes (Hospitalization)
  Sender: FDA-Public Use
  Company Number: KR-ROCHE-2990339

PATIENT
  Age: 69 Year
  Sex: Male
  Weight: 56.2 kg

DRUGS (6)
  1. FARICIMAB [Suspect]
     Active Substance: FARICIMAB
     Indication: Macular oedema
     Dosage: MOST RECENT DOSE OF STUDY DRUG PRIOR TO AE/SAE: 19/NOV/2021 AT 10:55 AM
     Route: 050
     Dates: start: 20210827
  2. FARICIMAB [Suspect]
     Active Substance: FARICIMAB
     Indication: Retinal vein occlusion
  3. FARICIMAB [Suspect]
     Active Substance: FARICIMAB
     Indication: Macular oedema
     Dosage: MOST RECENT DOSE OF STUDY DRUG PRIOR TO AE/SAE: 19/NOV/2021 AT 10:55 AM
     Route: 050
     Dates: start: 20210827
  4. FARICIMAB [Suspect]
     Active Substance: FARICIMAB
     Indication: Retinal vein occlusion
  5. NORVASC [Concomitant]
     Active Substance: AMLODIPINE BESYLATE
     Indication: Hypertension
  6. BETAXOLOL HYDROCHLORIDE [Concomitant]
     Active Substance: BETAXOLOL HYDROCHLORIDE
     Indication: Glaucoma
     Route: 047

REACTIONS (1)
  - Cerebral infarction [Not Recovered/Not Resolved]

NARRATIVE: CASE EVENT DATE: 20211201
